FAERS Safety Report 5494398-3 (Version None)
Quarter: 2007Q4

REPORT INFORMATION
  Report Type: 
  Country: None (occurrence: None)
  Receive Date: 20071015
  Receipt Date: 20070525
  Transmission Date: 20080405
  Serious: Yes (Other)
  Sender: FDA-Public Use
  Company Number: S07-USA-02267-01

PATIENT
  Age: 51 Year
  Sex: Female
  Weight: 77.1115 kg

DRUGS (4)
  1. LEXAPRO [Suspect]
     Indication: DEPRESSION
     Dosage: 70 MG ONCE PO
     Route: 048
     Dates: start: 20070509, end: 20070509
  2. WELLBUTRIN [Suspect]
     Indication: DEPRESSION
  3. SYNTHROID [Concomitant]
  4. HORMONES (NOS) [Concomitant]

REACTIONS (7)
  - ABDOMINAL PAIN [None]
  - ACCIDENTAL OVERDOSE [None]
  - CHEST PAIN [None]
  - DYSPNOEA [None]
  - FATIGUE [None]
  - NAUSEA [None]
  - VOMITING [None]
